FAERS Safety Report 7874584-5 (Version None)
Quarter: 2011Q4

REPORT INFORMATION
  Report Type: 
  Country: None (occurrence: None)
  Receive Date: 20111031
  Receipt Date: 20111026
  Transmission Date: 20120403
  Serious: Yes (Other)
  Sender: FDA-Public Use
  Company Number: US-PFIZER INC-2011262812

PATIENT
  Sex: Female

DRUGS (2)
  1. EFFEXOR XR [Suspect]
     Dosage: 75 MG, UNK
     Route: 048
  2. TRAZODONE HCL [Suspect]
     Dosage: UNK

REACTIONS (4)
  - DRUG DEPENDENCE [None]
  - HEAD DISCOMFORT [None]
  - DRUG DOSE OMISSION [None]
  - AGITATION [None]
